FAERS Safety Report 6584693-9 (Version None)
Quarter: 2010Q1

REPORT INFORMATION
  Report Type: 
  Country: None (occurrence: None)
  Receive Date: 20100204
  Receipt Date: 20100123
  Transmission Date: 20100710
  Serious: Yes (Other)
  Sender: FDA-Public Use
  Company Number: 2010AP000159

PATIENT
  Age: 41 Year
  Sex: Male

DRUGS (4)
  1. LISINOPRIL [Suspect]
     Indication: HYPERTENSION
  2. ACETYLSALICYLIC ACID [Suspect]
  3. GARLIC [Concomitant]
  4. CALCIUM [Concomitant]

REACTIONS (3)
  - ACCIDENTAL EXPOSURE [None]
  - ANGIOEDEMA [None]
  - DYSARTHRIA [None]
